FAERS Safety Report 15952981 (Version 6)
Quarter: 2020Q1

REPORT INFORMATION
  Report Type: Spontaneous
  Country: US (occurrence: US)
  Receive Date: 20190211
  Receipt Date: 20200306
  Transmission Date: 20200409
  Serious: Yes (Death, Other)
  Sender: FDA-Public Use
  Company Number: US-ASTRAZENECA-2019SE10431

PATIENT
  Age: 27234 Day
  Sex: Female
  Weight: 90.7 kg

DRUGS (46)
  1. NEXIUM [Suspect]
     Active Substance: ESOMEPRAZOLE MAGNESIUM
     Indication: GASTROOESOPHAGEAL REFLUX DISEASE
     Route: 048
     Dates: start: 20140803
  2. TORSEMIDE. [Concomitant]
     Active Substance: TORSEMIDE
  3. AMOXICILLIN/CLAV [Concomitant]
     Dates: start: 20140408
  4. TYLENOL [Concomitant]
     Active Substance: ACETAMINOPHEN
  5. LISINOPRIL. [Concomitant]
     Active Substance: LISINOPRIL
  6. PLAVIX [Concomitant]
     Active Substance: CLOPIDOGREL BISULFATE
  7. AMBIEN [Concomitant]
     Active Substance: ZOLPIDEM TARTRATE
  8. ENOXAPARIN [Concomitant]
     Active Substance: ENOXAPARIN
  9. CETRIZINE [Concomitant]
     Active Substance: CETIRIZINE HYDROCHLORIDE
     Dates: start: 20140408
  10. PROAIR HFA [Concomitant]
     Active Substance: ALBUTEROL SULFATE
     Dates: start: 20140408
  11. ZOLPIDEM [Concomitant]
     Active Substance: ZOLPIDEM TARTRATE
     Dates: start: 20140505
  12. NEURONTIN [Concomitant]
     Active Substance: GABAPENTIN
  13. BENICAR [Concomitant]
     Active Substance: OLMESARTAN MEDOXOMIL
  14. TRAMADOL. [Concomitant]
     Active Substance: TRAMADOL
     Dates: start: 20140505
  15. TEMAZEPAM. [Concomitant]
     Active Substance: TEMAZEPAM
     Dates: start: 20140505
  16. PROMETHAZINE [Concomitant]
     Active Substance: PROMETHAZINE HYDROCHLORIDE
     Dates: start: 20140505
  17. MAALOX ANTACID [Concomitant]
     Active Substance: ALUMINUM HYDROXIDE\DIMETHICONE\MAGNESIUM HYDROXIDE
  18. NEXIUM [Suspect]
     Active Substance: ESOMEPRAZOLE MAGNESIUM
     Indication: GASTROOESOPHAGEAL REFLUX DISEASE
     Route: 048
     Dates: start: 20090203
  19. NEXIUM [Suspect]
     Active Substance: ESOMEPRAZOLE MAGNESIUM
     Indication: GASTROOESOPHAGEAL REFLUX DISEASE
     Route: 048
     Dates: start: 20080328
  20. PROTONIX [Suspect]
     Active Substance: PANTOPRAZOLE SODIUM
     Indication: GASTROOESOPHAGEAL REFLUX DISEASE
     Route: 065
  21. PROTONIX [Suspect]
     Active Substance: PANTOPRAZOLE SODIUM
     Indication: GASTROOESOPHAGEAL REFLUX DISEASE
     Dosage: PANTOPRAZOLE
     Route: 065
     Dates: start: 20140724
  22. ALLOPURINOL. [Concomitant]
     Active Substance: ALLOPURINOL
  23. COREG [Concomitant]
     Active Substance: CARVEDILOL
  24. XANAX [Concomitant]
     Active Substance: ALPRAZOLAM
  25. ZOFRAN [Concomitant]
     Active Substance: ONDANSETRON HYDROCHLORIDE
  26. MIRAL [Concomitant]
  27. HYDROXYZINE [Concomitant]
     Active Substance: HYDROXYZINE HYDROCHLORIDE
  28. PREDNISONE. [Concomitant]
     Active Substance: PREDNISONE
     Dates: start: 20140505
  29. MORPHINE [Concomitant]
     Active Substance: MORPHINE
  30. HYDROCHLOROTHIAZIDE. [Concomitant]
     Active Substance: HYDROCHLOROTHIAZIDE
  31. FLUCONAZOLE. [Concomitant]
     Active Substance: FLUCONAZOLE
     Dates: start: 20140505
  32. POTASSIUM [Concomitant]
     Active Substance: POTASSIUM
  33. ZYRTEC [Concomitant]
     Active Substance: CETIRIZINE HYDROCHLORIDE
  34. LEXAPRO [Concomitant]
     Active Substance: ESCITALOPRAM OXALATE
  35. NITROGLYCERINE [Concomitant]
     Active Substance: NITROGLYCERIN
  36. HYDROCODONE/APA [Concomitant]
     Dates: start: 20140408
  37. PRAVASTATIN. [Concomitant]
     Active Substance: PRAVASTATIN
     Dates: start: 20140505
  38. MIRALAX [Concomitant]
     Active Substance: POLYETHYLENE GLYCOL 3350
  39. PRILOSEC [Suspect]
     Active Substance: OMEPRAZOLE MAGNESIUM
     Indication: GASTROOESOPHAGEAL REFLUX DISEASE
     Route: 048
  40. CELEXA [Concomitant]
     Active Substance: CITALOPRAM HYDROBROMIDE
  41. SIMVASTATIN. [Concomitant]
     Active Substance: SIMVASTATIN
  42. METOPROLOL. [Concomitant]
     Active Substance: METOPROLOL
  43. LEVAQUIN [Concomitant]
     Active Substance: LEVOFLOXACIN
     Dates: start: 20140505
  44. NEXIUM [Suspect]
     Active Substance: ESOMEPRAZOLE MAGNESIUM
     Indication: GASTROOESOPHAGEAL REFLUX DISEASE
     Route: 048
     Dates: start: 20081105
  45. NORCO [Concomitant]
     Active Substance: ACETAMINOPHEN\HYDROCODONE BITARTRATE
  46. AMLODIPINE [Concomitant]
     Active Substance: AMLODIPINE BESYLATE

REACTIONS (8)
  - Renal impairment [Unknown]
  - Renal failure [Unknown]
  - End stage renal disease [Fatal]
  - Cardiac failure congestive [Fatal]
  - Coronary artery disease [Fatal]
  - Chronic kidney disease [Unknown]
  - Rebound acid hypersecretion [Unknown]
  - Acute kidney injury [Unknown]

NARRATIVE: CASE EVENT DATE: 20140723
